FAERS Safety Report 9604202 (Version 1)
Quarter: 2013Q4

REPORT INFORMATION
  Report Type: Spontaneous
  Country: US (occurrence: US)
  Receive Date: 20131008
  Receipt Date: 20131008
  Transmission Date: 20140711
  Serious: No
  Sender: FDA-Public Use
  Company Number: US-B.I. PHARMACEUTICALS,INC./RIDGEFIELD-2013-BI-22309BP

PATIENT
  Age: 73 Year
  Sex: Male

DRUGS (1)
  1. DULCOLAX TABLETS [Suspect]
     Indication: CONSTIPATION
     Dosage: 15 MG
     Route: 048
     Dates: start: 2006

REACTIONS (1)
  - Constipation [Not Recovered/Not Resolved]
